FAERS Safety Report 8007297-X (Version None)
Quarter: 2011Q4

REPORT INFORMATION
  Report Type: 
  Country: None (occurrence: None)
  Receive Date: 20111123
  Receipt Date: 20111005
  Transmission Date: 20120403
  Serious: No
  Sender: FDA-Public Use
  Company Number: 336704

PATIENT
  Age: 57 Year
  Sex: Male

DRUGS (3)
  1. HYDROCHLOROTHIAZIDE [Suspect]
  2. VICTOZA [Suspect]
     Indication: TYPE 2 DIABETES MELLITUS
     Dosage: 0.6 MG, QD, SUBCUTANEOUS; 1.2 MG, QD, SUBCUTANEOUS
     Route: 058
  3. TWYNSTA  / 06289301 ( AMLODIPINE BESILATE , TELMISARTAN) [Suspect]

REACTIONS (2)
  - DECREASED APPETITE [None]
  - BLOOD PRESSURE DECREASED [None]
